FAERS Safety Report 10840146 (Version 2)
Quarter: 2015Q1

REPORT INFORMATION
  Report Type: Spontaneous
  Country: FR (occurrence: None)
  Receive Date: 20150218
  Receipt Date: 20150325
  Transmission Date: 20150721
  Serious: Yes (Life-Threatening)
  Sender: FDA-Public Use
  Company Number: FK201500752

PATIENT
  Age: 70 Year
  Sex: Female

DRUGS (4)
  1. PROPOFOL FRESENIUS (NOT SPECIFIED) (PROPOFOL) (PROPOFOL) [Suspect]
     Active Substance: PROPOFOL
     Indication: INDUCTION OF ANAESTHESIA
     Route: 042
     Dates: start: 20150128, end: 20150128
  2. KETAMINE PANPHARMA [Suspect]
     Active Substance: KETAMINE
     Indication: GENERAL ANAESTHESIA
     Route: 042
     Dates: start: 20150128, end: 20150128
  3. CELOCURINE [Suspect]
     Active Substance: SUCCINYLCHOLINE CHLORIDE
     Indication: GENERAL ANAESTHESIA
     Route: 042
     Dates: start: 20150128, end: 20150128
  4. SUFENTANIL MERCK (SUFENTANIL CITRATE) (SUFENTANIL CITRATE) [Suspect]
     Active Substance: SUFENTANIL
     Indication: GENERAL ANAESTHESIA
     Route: 042
     Dates: start: 20150128, end: 20150128

REACTIONS (4)
  - Anaphylactic shock [None]
  - Oxygen saturation decreased [None]
  - Tachycardia [None]
  - Rash [None]

NARRATIVE: CASE EVENT DATE: 20150128
